FAERS Safety Report 11466840 (Version 1)
Quarter: 2015Q3

REPORT INFORMATION
  Report Type: Other
  Country: HR (occurrence: HR)
  Receive Date: 20150908
  Receipt Date: 20150908
  Transmission Date: 20151125
  Serious: Yes (Hospitalization)
  Sender: FDA-Public Use
  Company Number: HR-ORCHID HEALTHCARE-1041673

PATIENT
  Age: 24 Year
  Sex: Female

DRUGS (1)
  1. CEPHALEXIN. [Suspect]
     Active Substance: CEPHALEXIN
     Indication: PHARYNGITIS
     Route: 065

REACTIONS (1)
  - Dystonia [Recovered/Resolved]
